FAERS Safety Report 9223501 (Version 1)
Quarter: 2013Q2

REPORT INFORMATION
  Report Type: Report from Study
  Country: US (occurrence: US)
  Receive Date: 20130410
  Receipt Date: 20130410
  Transmission Date: 20140414
  Serious: Yes (Other)
  Sender: FDA-Public Use
  Company Number: US-BAXTER-2013BAX013592

PATIENT
  Sex: Female

DRUGS (12)
  1. CYTOXAN (CYCLOPHOSPHAMIDE FOR INJECTION, USP) 2 GRAM VIAL (LYOPHILIZE [Suspect]
     Indication: LYMPHOMA
     Route: 065
  2. ADRIAMYCIN [Suspect]
     Indication: LYMPHOMA
     Route: 065
  3. BLEOMYCIN [Suspect]
     Indication: LYMPHOMA
     Route: 065
  4. VINBLASTINE [Suspect]
     Indication: LYMPHOMA
     Route: 065
  5. DACARBAZINE [Suspect]
     Indication: LYMPHOMA
     Route: 065
  6. RITUXIMAB [Suspect]
     Indication: LYMPHOMA
     Route: 065
  7. RITUXIMAB [Suspect]
     Route: 065
  8. RITUXIMAB [Suspect]
     Dosage: MAINTENANCE
     Route: 065
  9. GEMCITABINE [Suspect]
     Indication: LYMPHOMA
  10. VINCRISTINE [Suspect]
     Indication: LYMPHOMA
     Route: 065
  11. DOXORUBICIN [Suspect]
     Indication: LYMPHOMA
     Route: 065
  12. PREDNISONE [Suspect]
     Indication: LYMPHOMA
     Route: 065

REACTIONS (2)
  - Exposure during pregnancy [Recovered/Resolved]
  - Abortion spontaneous [Recovered/Resolved]
